FAERS Safety Report 16649000 (Version 3)
Quarter: 2022Q2

REPORT INFORMATION
  Report Type: Spontaneous
  Country: NL (occurrence: None)
  Receive Date: 20190730
  Receipt Date: 20220421
  Transmission Date: 20220720
  Serious: Yes (Hospitalization, Other)
  Sender: FDA-Public Use
  Company Number: 2019SF04839

PATIENT
  Sex: Female

DRUGS (15)
  1. QUETIAPINE [Interacting]
     Active Substance: QUETIAPINE
     Indication: Sleep disorder
     Route: 065
     Dates: start: 201705
  2. SIMVASTATIN [Interacting]
     Active Substance: SIMVASTATIN
     Route: 065
     Dates: start: 201705
  3. OXAZEPAM [Interacting]
     Active Substance: OXAZEPAM
     Dosage: 80 TO 90 MG
     Route: 065
  4. OXAZEPAM [Interacting]
     Active Substance: OXAZEPAM
     Dosage: MORE THAN 10 YEARS
     Route: 065
  5. OXAZEPAM [Interacting]
     Active Substance: OXAZEPAM
     Route: 065
     Dates: start: 201705
  6. TRANYLCYPROMINE SULFATE [Interacting]
     Active Substance: TRANYLCYPROMINE SULFATE
     Indication: Depression
     Dosage: 40 OR 80 MG DESCRIBED
     Route: 065
  7. TRANYLCYPROMINE SULFATE [Interacting]
     Active Substance: TRANYLCYPROMINE SULFATE
     Indication: Anxiety
     Dosage: 40 OR 80 MG DESCRIBED
     Route: 065
  8. TRANYLCYPROMINE SULFATE [Interacting]
     Active Substance: TRANYLCYPROMINE SULFATE
     Indication: Depression
     Dosage: 50 MG (20-10-10-10 MG)
     Route: 065
     Dates: start: 2016
  9. TRANYLCYPROMINE SULFATE [Interacting]
     Active Substance: TRANYLCYPROMINE SULFATE
     Indication: Anxiety
     Dosage: 50 MG (20-10-10-10 MG)
     Route: 065
     Dates: start: 2016
  10. FOSINOPRIL SODIUM [Interacting]
     Active Substance: FOSINOPRIL SODIUM
     Route: 065
     Dates: start: 201705
  11. ASPIRIN [Interacting]
     Active Substance: ASPIRIN
     Route: 065
     Dates: start: 201705
  12. TICAGRELOR [Concomitant]
     Active Substance: TICAGRELOR
     Dates: start: 201705
  13. SYNAPAUSE [Concomitant]
     Dosage: UNKNOWN DOSE, DAILLY
  14. PANTOPRAZOLE [Concomitant]
     Active Substance: PANTOPRAZOLE
     Dates: start: 201705
  15. LABETALOL [Concomitant]
     Active Substance: LABETALOL\LABETALOL HYDROCHLORIDE
     Indication: Hypertension
     Dosage: UNKNOWN DOSE, INTERMITTENT

REACTIONS (18)
  - Potentiating drug interaction [Unknown]
  - Labelled drug-food interaction medication error [Unknown]
  - Left ventricular dysfunction [Not Recovered/Not Resolved]
  - Suicidal ideation [Recovering/Resolving]
  - Myocardial infarction [Unknown]
  - Hypertensive crisis [Unknown]
  - Depression [Recovering/Resolving]
  - Diet noncompliance [Unknown]
  - Sleep disorder [Recovering/Resolving]
  - Weight increased [Not Recovered/Not Resolved]
  - Alopecia [Not Recovered/Not Resolved]
  - Bradycardia [Unknown]
  - Insomnia [Not Recovered/Not Resolved]
  - Orthostatic hypotension [Unknown]
  - Blood pressure diastolic increased [Unknown]
  - Intercepted medication error [Unknown]
  - Contraindicated product administered [Unknown]
  - Therapeutic response unexpected [Unknown]

NARRATIVE: CASE EVENT DATE: 20170101
